FAERS Safety Report 4412850-6 (Version None)
Quarter: 2004Q3

REPORT INFORMATION
  Report Type: 
  Country: None (occurrence: None)
  Receive Date: 20040727
  Receipt Date: 20040712
  Transmission Date: 20050211
  Serious: Yes (Hospitalization)
  Sender: FDA-Public Use
  Company Number: 207419

PATIENT
  Age: 43 Year
  Sex: Female

DRUGS (3)
  1. HERCEPTIN [Suspect]
     Dosage: SEE IMAGE
     Route: 042
     Dates: start: 20040122
  2. RADIATION THERAPY (RADIATION THERAPY) [Suspect]
     Indication: BREAST CANCER
     Dosage: 50 GY
     Dates: start: 20040505, end: 20040611
  3. AQUEOUS CREAM (DERMATOLOGIC AGENT NOS) [Concomitant]

REACTIONS (7)
  - ANGINA PECTORIS [None]
  - BLOOD MAGNESIUM DECREASED [None]
  - ELECTROCARDIOGRAM ABNORMAL [None]
  - PALPITATIONS [None]
  - VENTRICULAR ARRHYTHMIA [None]
  - VENTRICULAR EXTRASYSTOLES [None]
  - WHITE BLOOD CELL COUNT INCREASED [None]
